FAERS Safety Report 12612634 (Version 2)
Quarter: 2016Q4

REPORT INFORMATION
  Report Type: Spontaneous
  Country: FR (occurrence: FR)
  Receive Date: 20160801
  Receipt Date: 20161018
  Transmission Date: 20170207
  Serious: Yes (Hospitalization, Other)
  Sender: FDA-Public Use
  Company Number: FR-ALLERGAN-1664426US

PATIENT
  Age: 26 Year
  Sex: Female

DRUGS (5)
  1. ARIMIDEX [Suspect]
     Active Substance: ANASTROZOLE
     Dosage: UNK, 1 DOSAGE FORM
     Route: 048
     Dates: start: 20160429
  2. ARIMIDEX [Suspect]
     Active Substance: ANASTROZOLE
     Indication: PRODUCT USED FOR UNKNOWN INDICATION
     Dosage: UNK, 1 DOSAGE FORM
     Route: 048
     Dates: start: 20160412, end: 20160427
  3. DOLIPRANE [Concomitant]
     Active Substance: ACETAMINOPHEN
     Dosage: UNK UNK, PRN
  4. TRIPTORELIN PAMOATE UNK [Suspect]
     Active Substance: TRIPTORELIN PAMOATE
     Dosage: 1 DF, EVERY THREE MONTHS
     Route: 058
     Dates: start: 2016
  5. TRIPTORELIN PAMOATE UNK [Suspect]
     Active Substance: TRIPTORELIN PAMOATE
     Indication: BREAST CANCER
     Dosage: UNK
     Route: 058
     Dates: start: 20160415

REACTIONS (7)
  - Cerebral infarction [Recovering/Resolving]
  - Paraesthesia [Unknown]
  - Eye pain [Unknown]
  - Scintillating scotoma [Unknown]
  - Migraine with aura [Unknown]
  - Flushing [Unknown]
  - Off label use [Unknown]

NARRATIVE: CASE EVENT DATE: 2016
